FAERS Safety Report 8803000 (Version 1)
Quarter: 2012Q4

REPORT INFORMATION
  Report Type: 
  Country: US (occurrence: US)
  Receive Date: 20120924
  Receipt Date: 20120924
  Transmission Date: 20130627
  Serious: Yes (Hospitalization)
  Sender: FDA-Public Use
  Company Number: US-JNJFOC-20120906786

PATIENT
  Age: 0 Year
  Sex: Male
  Weight: 9.07 kg

DRUGS (1)
  1. SANDOZ FENTANYL TRANSDERMAL SYSTEM [Suspect]
     Indication: ACCIDENTAL EXPOSURE TO PRODUCT
     Route: 062
     Dates: start: 20120912, end: 20120913

REACTIONS (3)
  - Somnolence [Recovering/Resolving]
  - Accidental exposure to product [Recovered/Resolved]
  - Product quality issue [Unknown]
